FAERS Safety Report 25474075 (Version 3)
Quarter: 2025Q3

REPORT INFORMATION
  Report Type: Spontaneous
  Country: US (occurrence: US)
  Receive Date: 20250624
  Receipt Date: 20250717
  Transmission Date: 20251021
  Serious: Yes (Hospitalization, Other)
  Sender: ANI
  Company Number: US-ANIPHARMA-2025-US-028602

PATIENT
  Age: 71 Year
  Sex: Male
  Weight: 114.31 kg

DRUGS (4)
  1. CORTICOTROPIN [Suspect]
     Active Substance: CORTICOTROPIN
     Indication: Nephrotic syndrome
     Route: 058
     Dates: start: 20250608, end: 20250608
  2. INSULIN NOS [Concomitant]
     Active Substance: INSULIN NOS
  3. AMLODIPINE [Concomitant]
     Active Substance: AMLODIPINE BESYLATE
  4. METOPROLOL [Concomitant]
     Active Substance: METOPROLOL

REACTIONS (4)
  - Atrial fibrillation [Recovered/Resolved]
  - Contraindicated product administered [Recovered/Resolved]
  - Swelling [Recovered/Resolved]
  - Tachycardia [Recovered/Resolved]

NARRATIVE: CASE EVENT DATE: 20250608
